FAERS Safety Report 10957567 (Version 1)
Quarter: 2015Q1

REPORT INFORMATION
  Report Type: Spontaneous
  Country: JP (occurrence: JP)
  Receive Date: 20150326
  Receipt Date: 20150326
  Transmission Date: 20150721
  Serious: Yes (Death, Other)
  Sender: FDA-Public Use
  Company Number: JP-ASTELLAS-2015US007379

PATIENT
  Age: 78 Year
  Sex: Male

DRUGS (5)
  1. REBAMIPIDE [Concomitant]
     Active Substance: REBAMIPIDE
     Indication: PRODUCT USED FOR UNKNOWN INDICATION
     Dosage: UNK UNK, UNKNOWN FREQ.
     Route: 048
  2. ALLOID G [Concomitant]
     Active Substance: SODIUM ALGINATE
     Indication: PROPHYLAXIS
     Dates: start: 20150302, end: 20150309
  3. NEXIUM [Concomitant]
     Active Substance: ESOMEPRAZOLE MAGNESIUM
     Indication: PRODUCT USED FOR UNKNOWN INDICATION
     Dosage: UNK UNK, UNKNOWN FREQ.
  4. LOXOPROFEN [Concomitant]
     Active Substance: LOXOPROFEN
     Indication: LUNG ADENOCARCINOMA
     Dates: start: 20150129, end: 20150226
  5. ERLOTINIB [Suspect]
     Active Substance: ERLOTINIB
     Indication: LUNG ADENOCARCINOMA
     Route: 048
     Dates: start: 20150223

REACTIONS (3)
  - Lung disorder [Fatal]
  - Malignant pleural effusion [Unknown]
  - Respiratory failure [Fatal]

NARRATIVE: CASE EVENT DATE: 20150302
